FAERS Safety Report 6407098-X (Version None)
Quarter: 2009Q4

REPORT INFORMATION
  Report Type: 
  Country: None (occurrence: None)
  Receive Date: 20091020
  Receipt Date: 20091012
  Transmission Date: 20100525
  Serious: Yes (Hospitalization)
  Sender: FDA-Public Use
  Company Number: FR-ROCHE-640525

PATIENT
  Sex: Male
  Weight: 65 kg

DRUGS (4)
  1. ROACCUTANE [Suspect]
     Indication: ACNE
     Route: 048
     Dates: start: 20061101
  2. ROACCUTANE [Suspect]
     Route: 048
     Dates: start: 20070101, end: 20090101
  3. HYDROCORTISONE [Concomitant]
     Indication: DRUG USE FOR UNKNOWN INDICATION
     Route: 048
     Dates: start: 20080901, end: 20081101
  4. LIP BALM [Concomitant]
     Indication: DRUG USE FOR UNKNOWN INDICATION

REACTIONS (3)
  - ACNE CONGLOBATA [None]
  - ACNE PUSTULAR [None]
  - HYPERTROPHIC SCAR [None]
